FAERS Safety Report 9098619 (Version 2)
Quarter: 2013Q1

REPORT INFORMATION
  Report Type: Spontaneous
  Country: US (occurrence: US)
  Receive Date: 20130213
  Receipt Date: 20130301
  Transmission Date: 20140127
  Serious: Yes (Other)
  Sender: FDA-Public Use
  Company Number: US-PFIZER INC-2013057935

PATIENT
  Age: 68 Year
  Sex: Male
  Weight: 107 kg

DRUGS (11)
  1. LYRICA [Suspect]
     Indication: DIABETIC NEUROPATHY
     Dosage: UNK
     Route: 048
  2. GABAPENTIN [Suspect]
     Indication: DIABETIC NEUROPATHY
     Dosage: 900 MG, 1X/DAY (DAILY)
     Dates: start: 2012
  3. GABAPENTIN [Suspect]
     Dosage: UNK
  4. COUMADINE [Suspect]
     Indication: ARRHYTHMIA
     Dosage: 5 MG, UNK (FIVE TIMES A WEEK AND  10 MG TWO TIMES A WEEK)
  5. COUMADINE [Suspect]
     Dosage: UNK
  6. CARDIZEM CD [Concomitant]
     Indication: ARRHYTHMIA
     Dosage: 120 MG, 1X/DAY (DAILY)
  7. TYLENOL PM [Concomitant]
     Indication: SLEEP DISORDER
     Dosage: UNK
  8. TOPROL XL [Concomitant]
     Indication: ARRHYTHMIA
     Dosage: 50 MG, 1X/DAY (DAILY)
  9. MENTAX [Concomitant]
     Dosage: UNK
  10. VITAMIN B12 [Concomitant]
     Dosage: UNK
  11. VITAMIN B6 [Concomitant]
     Dosage: UNK

REACTIONS (7)
  - Haemorrhage [Unknown]
  - Drug ineffective [Unknown]
  - Gait disturbance [Unknown]
  - Skin lesion [Unknown]
  - Weight increased [Unknown]
  - Dizziness [Unknown]
  - Somnolence [Unknown]
